FAERS Safety Report 5411474-1 (Version None)
Quarter: 2007Q3

REPORT INFORMATION
  Report Type: 
  Country: None (occurrence: None)
  Receive Date: 20070810
  Receipt Date: 20070730
  Transmission Date: 20080115
  Serious: Yes (Other)
  Sender: FDA-Public Use
  Company Number: US-SHR-US-2007-028291

PATIENT
  Age: 44 Year
  Sex: Female

DRUGS (2)
  1. BETASERON [Suspect]
     Dosage: 8 MIU, EVERY 2D
     Route: 058
     Dates: start: 19940127, end: 20030101
  2. COPAXONE [Concomitant]
     Dates: end: 20070701

REACTIONS (3)
  - BRAIN NEOPLASM BENIGN [None]
  - DEPRESSION [None]
  - SUICIDAL IDEATION [None]
